FAERS Safety Report 9110262 (Version 1)
Quarter: 2013Q1

REPORT INFORMATION
  Report Type: Spontaneous
  Country: JP (occurrence: JP)
  Receive Date: 20130222
  Receipt Date: 20130222
  Transmission Date: 20140127
  Serious: Yes (Hospitalization)
  Sender: FDA-Public Use
  Company Number: JP-009507513-1302JPN007726

PATIENT
  Age: 60 Year
  Sex: Male

DRUGS (2)
  1. BETAMETHASONE [Suspect]
     Indication: FATIGUE
     Dosage: 2 MG, QD
  2. BETAMETHASONE [Suspect]
     Dosage: UNK

REACTIONS (2)
  - Fatigue [Recovering/Resolving]
  - Depression [Recovering/Resolving]
